FAERS Safety Report 17183570 (Version 1)
Quarter: 2019Q4

REPORT INFORMATION
  Report Type: Spontaneous
  Country: US (occurrence: US)
  Receive Date: 20191126
  Receipt Date: 20191126
  Transmission Date: 20200122
  Serious: Yes (Life-Threatening, Hospitalization, Disabling, Other)
  Sender: FDA-Public Use
  Company Number: None

PATIENT
  Age: 72 Year
  Sex: Female
  Weight: 45.81 kg

DRUGS (26)
  1. FISH OIL [Concomitant]
     Active Substance: FISH OIL
  2. ASPIRIN. [Suspect]
     Active Substance: ASPIRIN
  3. CALCIUM [Concomitant]
     Active Substance: CALCIUM
  4. VITAMIN C [Concomitant]
     Active Substance: ASCORBIC ACID
  5. OCUVITE [Concomitant]
     Active Substance: VITAMINS
  6. VITAMIN B12 [Concomitant]
     Active Substance: CYANOCOBALAMIN
  7. VITAMIN E [Concomitant]
     Active Substance: .ALPHA.-TOCOPHEROL
  8. JOINT FORMULA [Concomitant]
  9. CLARITIN [Suspect]
     Active Substance: LORATADINE
     Indication: PRODUCT USED FOR UNKNOWN INDICATION
  10. AMLODIPINE [Concomitant]
     Active Substance: AMLODIPINE BESYLATE
  11. NASA MIST [Concomitant]
  12. TEA [Concomitant]
     Active Substance: TEA LEAF
  13. CLARITIN [Suspect]
     Active Substance: LORATADINE
  14. FLUTICASONE. [Concomitant]
     Active Substance: FLUTICASONE
  15. ROBITUSSIN (GUAIFENESIN) [Concomitant]
     Active Substance: GUAIFENESIN
  16. PENICILLIN [Suspect]
     Active Substance: PENICILLIN
  17. TYLENOL [Suspect]
     Active Substance: ACETAMINOPHEN
  18. RISPERIDONE. [Suspect]
     Active Substance: RISPERIDONE
  19. FOCUS FACTOR [Concomitant]
  20. BIAXIN [Suspect]
     Active Substance: CLARITHROMYCIN
  21. DRAMAMINE [Suspect]
     Active Substance: DIMENHYDRINATE
  22. ATORVASTATIN [Concomitant]
     Active Substance: ATORVASTATIN
  23. MONTELUKAST [Concomitant]
     Active Substance: MONTELUKAST SODIUM
  24. OMEPRAZOLE. [Concomitant]
     Active Substance: OMEPRAZOLE
  25. VITAMIN D [Concomitant]
     Active Substance: VITAMIN D NOS
  26. PANTOTHENIC ACID [Concomitant]
     Active Substance: PANTOTHENIC ACID

REACTIONS (8)
  - Syncope [None]
  - Eye swelling [None]
  - Dizziness [None]
  - Pruritus [None]
  - Vomiting [None]
  - Diarrhoea [None]
  - Onychalgia [None]
  - Gastric disorder [None]
